FAERS Safety Report 21653667 (Version 1)
Quarter: 2022Q4

REPORT INFORMATION
  Report Type: Spontaneous
  Country: GB (occurrence: GB)
  Receive Date: 20221129
  Receipt Date: 20221129
  Transmission Date: 20230113
  Serious: Yes (Hospitalization, Other)
  Sender: FDA-Public Use
  Company Number: GB-ALKEM LABORATORIES LIMITED-GB-ALKEM-2022-13243

PATIENT
  Age: 65 Year
  Sex: Female

DRUGS (1)
  1. OLANZAPINE [Suspect]
     Active Substance: OLANZAPINE
     Indication: Schizophrenia
     Dosage: 10 MILLIGRAM, HS (ONCE NIGHTLY)
     Route: 065

REACTIONS (3)
  - Acute kidney injury [Recovering/Resolving]
  - Eosinophilic myocarditis [Recovering/Resolving]
  - Rhabdomyolysis [Recovering/Resolving]
